FAERS Safety Report 17511894 (Version 1)
Quarter: 2020Q1

REPORT INFORMATION
  Report Type: Spontaneous
  Country: US (occurrence: US)
  Receive Date: 20200306
  Receipt Date: 20200306
  Transmission Date: 20200409
  Serious: Yes (Other)
  Sender: FDA-Public Use
  Company Number: US-BAYER-2020-040635

PATIENT
  Age: 41 Year
  Sex: Male

DRUGS (3)
  1. ANTIBIOTIC SIMPLEX [Concomitant]
  2. ACETYLSALICYLIC ACID [Suspect]
     Active Substance: ASPIRIN
  3. WARFARIN [Suspect]
     Active Substance: WARFARIN

REACTIONS (2)
  - Subarachnoid haemorrhage [None]
  - Labelled drug-drug interaction medication error [None]
